FAERS Safety Report 10164602 (Version 1)
Quarter: 2014Q2

REPORT INFORMATION
  Report Type: Spontaneous
  Country: US (occurrence: US)
  Receive Date: 20140510
  Receipt Date: 20140510
  Transmission Date: 20141212
  Serious: No
  Sender: FDA-Public Use
  Company Number: US-BRISTOL-MYERS SQUIBB COMPANY-19594357

PATIENT
  Age: 62 Year
  Sex: Male
  Weight: 89.79 kg

DRUGS (4)
  1. BYDUREON [Suspect]
     Indication: TYPE 2 DIABETES MELLITUS
  2. METFORMIN [Concomitant]
     Dosage: 1DF:1000 UNITS NOS
  3. ACTOS [Concomitant]
  4. ONGLYZA TABS 5 MG [Concomitant]

REACTIONS (1)
  - Injection site mass [Unknown]
